FAERS Safety Report 12355193 (Version 2)
Quarter: 2016Q2

REPORT INFORMATION
  Report Type: Spontaneous
  Country: ES (occurrence: ES)
  Receive Date: 20160511
  Receipt Date: 20160518
  Transmission Date: 20160815
  Serious: Yes (Other)
  Sender: FDA-Public Use
  Company Number: ES-MYLANLABS-2016M1019340

PATIENT

DRUGS (6)
  1. OMEPRAZOLE. [Concomitant]
     Active Substance: OMEPRAZOLE
     Indication: DYSPNOEA
     Dosage: 20 MG, QD
     Route: 065
  2. ACETYLCYSTEINE. [Concomitant]
     Active Substance: ACETYLCYSTEINE
     Indication: DYSPNOEA
     Route: 065
  3. ORAMORPH [Suspect]
     Active Substance: MORPHINE SULFATE
     Dosage: 3 MG, Q4H
     Route: 048
     Dates: start: 201301
  4. ORAMORPH [Suspect]
     Active Substance: MORPHINE SULFATE
     Indication: DYSPNOEA
     Dosage: 2 MG, Q4H
     Route: 048
     Dates: start: 201301
  5. PREDNISONE. [Concomitant]
     Active Substance: PREDNISONE
     Indication: DYSPNOEA
     Dosage: 30 MG, QD
     Route: 065
  6. MAGNESIUM HYDROXIDE. [Concomitant]
     Active Substance: MAGNESIUM HYDROXIDE
     Indication: LAXATIVE SUPPORTIVE CARE
     Route: 065

REACTIONS (2)
  - Faecaloma [Unknown]
  - Constipation [Unknown]
